FAERS Safety Report 7718383-3 (Version None)
Quarter: 2011Q3

REPORT INFORMATION
  Report Type: 
  Country: None (occurrence: None)
  Receive Date: 20110830
  Receipt Date: 20110825
  Transmission Date: 20111222
  Serious: Yes (Other)
  Sender: FDA-Public Use
  Company Number: US-PFIZER INC-2011115326

PATIENT
  Sex: Female

DRUGS (20)
  1. HYDROCODONE [Concomitant]
     Indication: PAIN
     Dosage: UNK
     Dates: start: 20040101, end: 20090101
  2. VAGIFEM [Concomitant]
     Indication: OESTROGEN THERAPY
     Dosage: UNK
     Dates: start: 20050101, end: 20090101
  3. CHANTIX [Suspect]
     Indication: SMOKING CESSATION THERAPY
     Dosage: STARTING MONTH PACK AND 1 MG PACK
     Dates: start: 20070601, end: 20071001
  4. CIPROFLOXACIN [Concomitant]
     Indication: ANTIBIOTIC THERAPY
     Dosage: UNK
     Dates: start: 20030101, end: 20080101
  5. EFFEXOR XR [Concomitant]
     Indication: ANXIETY
     Dosage: 75 MG
     Dates: start: 20030101, end: 20090101
  6. IBUPROFEN [Concomitant]
     Indication: PAIN
     Dosage: UNK
     Dates: start: 20060101, end: 20080101
  7. NICOTINE [Concomitant]
     Indication: SMOKING CESSATION THERAPY
     Dosage: UNK
     Dates: start: 20030101, end: 20090101
  8. AMITRIPTYLINE [Concomitant]
     Indication: DEPRESSION
     Dosage: 25 MG
     Dates: start: 20030101, end: 20090101
  9. PROPOXYPHENE HCL AND ACETAMINOPHEN [Concomitant]
     Indication: PAIN
     Dosage: UNK
     Dates: start: 20050101, end: 20090101
  10. CYCLOBENZAPRINE [Concomitant]
     Indication: MUSCLE RELAXANT THERAPY
     Dosage: UNK
     Dates: start: 20060101, end: 20090101
  11. MACROBID [Concomitant]
     Indication: URINARY TRACT INFECTION
     Dosage: UNK
     Dates: start: 20030101, end: 20090101
  12. EFFEXOR XR [Concomitant]
     Indication: DEPRESSION
  13. ACETAMINOPHEN W/ CODEINE [Concomitant]
     Indication: PAIN
     Dosage: UNK
     Dates: start: 20030101, end: 20080101
  14. ALPRAZOLAM [Concomitant]
     Indication: ANXIETY
     Dosage: UNK
     Dates: start: 20030101, end: 20090101
  15. DIFLUCAN [Concomitant]
     Indication: FUNGAL INFECTION
     Dosage: UNK
     Dates: start: 20030101, end: 20090101
  16. AMOXICILLIN [Concomitant]
     Indication: ANTIBIOTIC THERAPY
     Dosage: UNK
     Dates: start: 20040101, end: 20080101
  17. PENICILLIN VK [Concomitant]
     Indication: ANTIBIOTIC THERAPY
     Dosage: UNK
     Dates: start: 20050101, end: 20080101
  18. AMITRIPTYLINE [Concomitant]
     Indication: ANXIETY
  19. CEPHALEXIN [Concomitant]
     Indication: ANTIBIOTIC THERAPY
     Dosage: UNK
     Dates: start: 20060101, end: 20090101
  20. IBUPROFEN [Concomitant]
     Indication: ARTHRITIS

REACTIONS (2)
  - ANXIETY [None]
  - DEPRESSION [None]
